FAERS Safety Report 23111388 (Version 1)
Quarter: 2023Q4

REPORT INFORMATION
  Report Type: Spontaneous
  Country: US (occurrence: None)
  Receive Date: 20231025
  Receipt Date: 20231025
  Transmission Date: 20240110
  Serious: Yes (Other)
  Sender: FDA-Public Use
  Company Number: None

PATIENT
  Sex: Female

DRUGS (6)
  1. KESIMPTA [Suspect]
     Active Substance: OFATUMUMAB
     Indication: Multiple sclerosis
     Dosage: OTHER QUANTITY : 20 MG/0.4ML;?FREQUENCY : MONTHLY;?
     Route: 058
     Dates: start: 20210629
  2. KESIMPTA [Suspect]
     Active Substance: OFATUMUMAB
     Dosage: FREQUENCY : MONTHLY;?
     Route: 058
  3. AMANTADINE [Concomitant]
  4. OMEGA [Concomitant]
  5. VITAMIN B12 [Concomitant]
     Active Substance: CYANOCOBALAMIN
  6. VITAMIN D3 [Concomitant]
     Active Substance: CHOLECALCIFEROL

REACTIONS (4)
  - Abortion spontaneous [None]
  - Multiple sclerosis relapse [None]
  - Maternal exposure during pregnancy [None]
  - Foetal exposure during pregnancy [None]
